FAERS Safety Report 8201021-3 (Version None)
Quarter: 2012Q1

REPORT INFORMATION
  Report Type: 
  Country: None (occurrence: None)
  Receive Date: 20120312
  Receipt Date: 20111216
  Transmission Date: 20120608
  Serious: No
  Sender: FDA-Public Use
  Company Number: US-PFIZER INC-2011270600

PATIENT
  Sex: Male

DRUGS (1)
  1. XALKORI [Suspect]
     Indication: LUNG NEOPLASM MALIGNANT
     Dosage: 250 MG, UNK
     Dates: start: 20111001

REACTIONS (7)
  - DIARRHOEA [None]
  - AGEUSIA [None]
  - VISUAL ACUITY REDUCED [None]
  - DECREASED APPETITE [None]
  - PHOTOPHOBIA [None]
  - VITREOUS FLOATERS [None]
  - FATIGUE [None]
